FAERS Safety Report 4714379-4 (Version None)
Quarter: 2005Q3

REPORT INFORMATION
  Report Type: 
  Country: None (occurrence: None)
  Receive Date: 20050712
  Receipt Date: 20050708
  Transmission Date: 20060218
  Serious: Yes (Death)
  Sender: FDA-Public Use
  Company Number: 200510530GDS

PATIENT
  Age: 91 Year
  Sex: Male

DRUGS (1)
  1. CIPROFLOXACIN [Suspect]
     Indication: INFLAMMATION
     Dosage: 2050 MG, BID,ORAL
     Route: 048
     Dates: start: 20050210, end: 20050215

REACTIONS (1)
  - TOXIC EPIDERMAL NECROLYSIS [None]
